FAERS Safety Report 13036594 (Version 1)
Quarter: 2016Q4

REPORT INFORMATION
  Report Type: Spontaneous
  Country: FR (occurrence: FR)
  Receive Date: 20161216
  Receipt Date: 20161216
  Transmission Date: 20170207
  Serious: Yes (Hospitalization, Other)
  Sender: FDA-Public Use
  Company Number: FR-009507513-1612FRA006514

PATIENT
  Sex: Female

DRUGS (12)
  1. COAPROVEL [Concomitant]
     Active Substance: HYDROCHLOROTHIAZIDE\IRBESARTAN
     Dosage: 300/25 MG AT 1 DF IN THE MORNING
  2. UVEDOSE [Concomitant]
     Active Substance: CHOLECALCIFEROL
     Dosage: FRECUENCY: EVERY THREE MONTHS
  3. CALCIUM POLYSTYRENE SULFONATE [Suspect]
     Active Substance: CALCIUM POLYSTYRENE SULFONATE
     Indication: HYPERKALAEMIA
     Dosage: 1 MEASURING SPOON EVERY TWO DAY
     Route: 048
     Dates: end: 20160924
  4. VASTAREL [Concomitant]
     Active Substance: TRIMETAZIDINE DIHYDROCHLORIDE
     Dosage: 35 MG AT 1 DF IN THE MORNING AND AT NIGTH
  5. VELMETIA [Suspect]
     Active Substance: METFORMIN\SITAGLIPTIN
     Indication: TYPE 2 DIABETES MELLITUS
     Dosage: 1 TABLET IN THE MORNING AND AT NIGHT
     Route: 048
     Dates: end: 20160926
  6. DIAMICRON [Suspect]
     Active Substance: GLICLAZIDE
     Indication: TYPE 2 DIABETES MELLITUS
     Dosage: 2 TABLETS IN THE MORNING; REGIMEN #1
     Route: 048
     Dates: end: 20160926
  7. LANTUS [Concomitant]
     Active Substance: INSULIN GLARGINE
     Dosage: 16 UI, UNSPECIFIED FRECUENCY
  8. TAHOR [Concomitant]
     Active Substance: ATORVASTATIN CALCIUM
     Dosage: 40 MG AT 1 DF AT NIGTH
  9. LERCAN [Concomitant]
     Active Substance: LERCANIDIPINE
     Dosage: 20 MG AT 1 DF AT NIGHT
  10. ALDACTONE [Suspect]
     Active Substance: SPIRONOLACTONE
     Indication: HYPERTENSION
     Dosage: 1 TABLET IN THE MORNING; REGIMEN #1
     Route: 048
     Dates: end: 20160924
  11. KARDEGIC [Concomitant]
     Active Substance: ASPIRIN LYSINE
     Dosage: 75 MG AT 1 DF AT NOON
  12. MOPRAL (OMEPRAZOLE) [Concomitant]
     Active Substance: OMEPRAZOLE SODIUM
     Dosage: 20 MG AT NIGHT

REACTIONS (5)
  - Diarrhoea [Recovered/Resolved]
  - Dyspnoea exertional [Unknown]
  - Hyperkalaemia [Unknown]
  - Diabetes mellitus inadequate control [Unknown]
  - Chest discomfort [Unknown]

NARRATIVE: CASE EVENT DATE: 2016
